FAERS Safety Report 14604791 (Version 1)
Quarter: 2018Q1

REPORT INFORMATION
  Report Type: Spontaneous
  Country: US (occurrence: US)
  Receive Date: 20180306
  Receipt Date: 20180306
  Transmission Date: 20180509
  Serious: Yes (Other)
  Sender: FDA-Public Use
  Company Number: None

PATIENT
  Age: 51 Year
  Sex: Female
  Weight: 157.5 kg

DRUGS (1)
  1. ICY HOT MEDICATED NO MESS APPLICATOR [Suspect]
     Active Substance: MENTHOL
     Indication: MYALGIA
     Dosage: ?          QUANTITY:1 TOPICAL;?
     Route: 061
     Dates: start: 20180305, end: 20180305

REACTIONS (1)
  - Burns first degree [None]

NARRATIVE: CASE EVENT DATE: 20180305
